FAERS Safety Report 8094886-X (Version None)
Quarter: 2012Q1

REPORT INFORMATION
  Report Type: 
  Country: None (occurrence: None)
  Receive Date: 20120130
  Receipt Date: 20120119
  Transmission Date: 20120608
  Serious: Yes (Hospitalization)
  Sender: FDA-Public Use
  Company Number: DE-BIOGENIDEC-2011BI044162

PATIENT
  Age: 31 Year
  Sex: Female
  Weight: 66 kg

DRUGS (4)
  1. PRESINOL [Concomitant]
     Indication: HYPERTENSION
     Dates: start: 20070101, end: 20110801
  2. LEVOTHYROXINE SODIUM [Concomitant]
     Indication: HYPOTHYROIDISM
     Dates: start: 20060101
  3. AVONEX [Suspect]
     Indication: MULTIPLE SCLEROSIS
     Route: 030
     Dates: start: 20110601, end: 20110810
  4. RAMIPRIL [Concomitant]
     Indication: HYPERTENSION
     Dates: start: 20110801

REACTIONS (6)
  - IRON DEFICIENCY ANAEMIA [None]
  - ATRIOVENTRICULAR BLOCK COMPLETE [None]
  - HEPATIC ENZYME INCREASED [None]
  - PYELONEPHRITIS [None]
  - URINARY TRACT INFECTION [None]
  - BRADYCARDIA [None]
